FAERS Safety Report 23584665 (Version 3)
Quarter: 2024Q1

REPORT INFORMATION
  Report Type: Spontaneous
  Country: CU (occurrence: None)
  Receive Date: 20240301
  Receipt Date: 20240311
  Transmission Date: 20240410
  Serious: Yes (Other)
  Sender: FDA-Public Use
  Company Number: CU-ROCHE-3515414

PATIENT
  Age: 22 Year
  Sex: Male
  Weight: 72 kg

DRUGS (2)
  1. EMICIZUMAB [Suspect]
     Active Substance: EMICIZUMAB
     Indication: Prophylaxis
     Dosage: MAINTENANCE DOSE
     Route: 058
     Dates: start: 20190905
  2. EMICIZUMAB [Suspect]
     Active Substance: EMICIZUMAB
     Dosage: MAINTENANCE DOSE
     Route: 058
     Dates: start: 20240201

REACTIONS (1)
  - Haematoma muscle [Recovering/Resolving]

NARRATIVE: CASE EVENT DATE: 20240201
